FAERS Safety Report 22053668 (Version 1)
Quarter: 2023Q1

REPORT INFORMATION
  Report Type: Spontaneous
  Country: US (occurrence: US)
  Receive Date: 20230302
  Receipt Date: 20230302
  Transmission Date: 20230418
  Serious: No
  Sender: FDA-Public Use
  Company Number: US-GSKCCFUS-Case-01622829_AE-92679

PATIENT
  Sex: Female

DRUGS (2)
  1. NUCALA [Suspect]
     Active Substance: MEPOLIZUMAB
     Indication: Asthma
     Dosage: 100 MCG/MG
     Route: 058
  2. PRILOSEC [Suspect]
     Active Substance: OMEPRAZOLE MAGNESIUM
     Indication: Product used for unknown indication
     Dosage: UNK

REACTIONS (9)
  - Parosmia [Unknown]
  - Conjunctivitis [Unknown]
  - Eye pain [Unknown]
  - Skin wound [Unknown]
  - Dry skin [Unknown]
  - Sticky skin [Unknown]
  - COVID-19 [Unknown]
  - Eczema [Unknown]
  - Eye discharge [Unknown]
